FAERS Safety Report 9822353 (Version 2)
Quarter: 2019Q1

REPORT INFORMATION
  Report Type: Spontaneous
  Country: CA (occurrence: CA)
  Receive Date: 20140116
  Receipt Date: 20190203
  Transmission Date: 20190418
  Serious: Yes (Other)
  Sender: FDA-Public Use
  Company Number: CA-009507513-1401CAN005444

PATIENT
  Age: 19 Year
  Sex: Female

DRUGS (4)
  1. RABEPRAZOLE SODIUM. [Concomitant]
     Active Substance: RABEPRAZOLE SODIUM
     Dosage: 10 MILLIGRAM, ONCE DAILY, PRN
     Route: 048
  2. JANUMET [Suspect]
     Active Substance: METFORMIN HYDROCHLORIDE\SITAGLIPTIN PHOSPHATE
     Indication: TYPE 2 DIABETES MELLITUS
     Dosage: 1 PILL, TWICE DAILY
     Route: 048
     Dates: start: 20121113, end: 20121125
  3. PANTOLOC [Concomitant]
     Active Substance: PANTOPRAZOLE SODIUM
     Dosage: 40 MILLIGRAM, ONCE DAILY
     Route: 048
  4. VALACYCLOVIR HYDROCHLORIDE. [Concomitant]
     Active Substance: VALACYCLOVIR HYDROCHLORIDE
     Indication: PROPHYLAXIS
     Dosage: 500 MILLIGRAM, ONCE DAILY
     Route: 048

REACTIONS (2)
  - Abdominal pain [Recovered/Resolved]
  - Lipase increased [Recovered/Resolved]

NARRATIVE: CASE EVENT DATE: 20121124
